FAERS Safety Report 10256152 (Version 1)
Quarter: 2014Q2

REPORT INFORMATION
  Report Type: Spontaneous
  Country: ES (occurrence: ES)
  Receive Date: 20140624
  Receipt Date: 20140624
  Transmission Date: 20141212
  Serious: Yes (Other)
  Sender: FDA-Public Use
  Company Number: ES-ROXANE LABORATORIES, INC.-2014-RO-00966RO

PATIENT
  Age: 11 Year
  Sex: Female

DRUGS (1)
  1. MONTELUKAST SODIUM [Suspect]
     Indication: ASTHMA EXERCISE INDUCED
     Route: 065

REACTIONS (1)
  - Alice in wonderland syndrome [Recovered/Resolved]
